FAERS Safety Report 24447104 (Version 1)
Quarter: 2024Q4

REPORT INFORMATION
  Report Type: Spontaneous
  Country: US (occurrence: US)
  Receive Date: 20241016
  Receipt Date: 20241016
  Transmission Date: 20250114
  Serious: No
  Sender: Haleon PLC
  Company Number: US-HALEON-2202576

PATIENT
  Age: 55 Year
  Sex: Female

DRUGS (2)
  1. SENSODYNE ADVANCED WHITENING [Suspect]
     Active Substance: POTASSIUM NITRATE\SODIUM FLUORIDE
     Indication: Dental cleaning
     Dosage: 0 - UNKNOWN (U)
     Dates: start: 20240501
  2. SENSODYNE ADVANCED WHITENING [Suspect]
     Active Substance: POTASSIUM NITRATE\SODIUM FLUORIDE
     Dates: end: 20241012

REACTIONS (3)
  - Hyperaesthesia teeth [Recovering/Resolving]
  - Condition aggravated [Recovering/Resolving]
  - Discomfort [Recovering/Resolving]

NARRATIVE: CASE EVENT DATE: 20241009
